FAERS Safety Report 23671161 (Version 1)
Quarter: 2024Q1

REPORT INFORMATION
  Report Type: Spontaneous
  Country: JP (occurrence: JP)
  Receive Date: 20240326
  Receipt Date: 20240326
  Transmission Date: 20240410
  Serious: Yes (Other)
  Sender: FDA-Public Use
  Company Number: JP-AMGEN-JPNSP2024057445

PATIENT
  Age: 12 Year
  Sex: Female

DRUGS (12)
  1. BLINATUMOMAB [Suspect]
     Active Substance: BLINATUMOMAB
     Indication: B precursor type acute leukaemia
     Dosage: UNK (TWO COURSES)
     Route: 065
  2. FILGRASTIM [Suspect]
     Active Substance: FILGRASTIM
     Indication: B precursor type acute leukaemia
     Dosage: UNK (ONE COURSE)
     Route: 065
  3. FLUDARABINE [Concomitant]
     Active Substance: FLUDARABINE PHOSPHATE
     Indication: B precursor type acute leukaemia
     Dosage: UNK (ONE COURSE)
     Route: 065
  4. FLUDARABINE [Concomitant]
     Active Substance: FLUDARABINE PHOSPHATE
     Dosage: 30 MILLIGRAM/SQ. METER, QD (DAY -11 TO -8)
     Route: 065
  5. CYTARABINE [Concomitant]
     Active Substance: CYTARABINE
     Indication: B precursor type acute leukaemia
     Dosage: UNK (ONE COURSE)
     Route: 065
  6. CLOFARABINE [Concomitant]
     Active Substance: CLOFARABINE
     Indication: B precursor type acute leukaemia
     Dosage: UNK (TWO COURSES)
     Route: 065
  7. ETOPOSIDE [Concomitant]
     Active Substance: ETOPOSIDE
     Indication: B precursor type acute leukaemia
     Dosage: 20 MILLIGRAM/KILOGRAM, QD (DAY -7)
     Route: 065
  8. BUSULFAN [Concomitant]
     Active Substance: BUSULFAN
     Indication: B precursor type acute leukaemia
     Dosage: 0.8 MILLIGRAM/KILOGRAM/DOSE X 4 (DAY -6 TO -5)
     Route: 065
  9. MELPHALAN [Concomitant]
     Active Substance: MELPHALAN
     Indication: B precursor type acute leukaemia
     Dosage: 60 MILLIGRAM/SQ. METER, QD (DAY -4 TO -2)
     Route: 065
  10. CYCLOSPORINE [Concomitant]
     Active Substance: CYCLOSPORINE
     Indication: Prophylaxis against graft versus host disease
     Route: 065
  11. MYCOPHENOLATE MOFETIL [Concomitant]
     Active Substance: MYCOPHENOLATE MOFETIL
     Indication: Prophylaxis against graft versus host disease
     Dosage: UNK
     Route: 065
  12. MYCOPHENOLATE MOFETIL [Concomitant]
     Active Substance: MYCOPHENOLATE MOFETIL
     Indication: Acute graft versus host disease in intestine
     Dosage: 600 MILLIGRAM/SQ. METER, QD (DIVIDED INTO TWO DAILY DOSES)
     Route: 065

REACTIONS (3)
  - Acute graft versus host disease in skin [Recovering/Resolving]
  - Acute graft versus host disease in intestine [Recovering/Resolving]
  - Off label use [Unknown]
